FAERS Safety Report 6188129-1 (Version None)
Quarter: 2009Q2

REPORT INFORMATION
  Report Type: 
  Country: None (occurrence: None)
  Receive Date: 20090513
  Receipt Date: 20071015
  Transmission Date: 20091009
  Serious: No
  Sender: FDA-Public Use
  Company Number: A0721225A

PATIENT
  Age: 83 Year
  Sex: Male
  Weight: 72.58 kg

DRUGS (8)
  1. DYNACIRC CR [Suspect]
     Indication: BLOOD PRESSURE
     Dates: start: 20070927, end: 20071001
  2. LABETALOL HCL [Suspect]
     Indication: HYPERTENSION
     Dosage: 200MG PER DAY
  3. CLONIDINE [Suspect]
     Indication: HYPERTENSION
     Dosage: .2MG PER DAY
  4. NORVASC [Suspect]
     Indication: HYPERTENSION
     Dosage: 10MG PER DAY
     Dates: end: 20070927
  5. NORVASC [Suspect]
     Dosage: 10MG PER DAY
     Dates: start: 20071001
  6. ASPIRIN [Concomitant]
     Dosage: 650MG PER DAY
  7. PRAVASTATIN [Concomitant]
     Indication: BLOOD CHOLESTEROL INCREASED
     Dosage: 50MG PER DAY
  8. FINASTERIDE [Concomitant]
     Indication: PROSTATE EXAMINATION ABNORMAL

REACTIONS (5)
  - CONDITION AGGRAVATED [None]
  - DIZZINESS [None]
  - LETHARGY [None]
  - SOMNOLENCE [None]
  - THERAPEUTIC RESPONSE DECREASED [None]
